FAERS Safety Report 8831080 (Version 2)
Quarter: 2012Q4

REPORT INFORMATION
  Report Type: 
  Country: DE (occurrence: ES)
  Receive Date: 20121009
  Receipt Date: 20121231
  Transmission Date: 20130627
  Serious: Yes (Other)
  Sender: FDA-Public Use
  Company Number: DE-UCBSA-068256

PATIENT
  Sex: Male

DRUGS (3)
  1. LEVETIRACETAM UCB [Suspect]
     Indication: EPILEPSY
     Dosage: UNKNOWN DOSE
  2. PARACETAMOL [Suspect]
     Indication: PAIN
     Dosage: UNKNOWN DOSE
     Dates: start: 201209
  3. GLUCOSE [Suspect]
     Dosage: UNKNOWN DOSE
     Route: 042
     Dates: start: 201209

REACTIONS (4)
  - Circulatory collapse [Unknown]
  - Gastrointestinal pain [Unknown]
  - Diarrhoea [Unknown]
  - Nausea [Unknown]
